FAERS Safety Report 20821845 (Version 3)
Quarter: 2023Q2

REPORT INFORMATION
  Report Type: Report from Study
  Country: CN (occurrence: CN)
  Receive Date: 20220512
  Receipt Date: 20230502
  Transmission Date: 20230722
  Serious: Yes (Hospitalization)
  Sender: FDA-Public Use
  Company Number: CN-PFIZER INC-202200651056

PATIENT
  Age: 57 Year
  Sex: Female

DRUGS (8)
  1. EPIRUBICIN HYDROCHLORIDE [Suspect]
     Active Substance: EPIRUBICIN HYDROCHLORIDE
     Indication: Hepatic cancer
     Dosage: TACE THERAPY, 40 MG, SINGLE
     Dates: start: 20210811, end: 20210811
  2. EPIRUBICIN HYDROCHLORIDE [Suspect]
     Active Substance: EPIRUBICIN HYDROCHLORIDE
     Dosage: TACE THERAPY, 40 MG, SINGLE
     Dates: start: 20210917, end: 20210917
  3. CAMRELIZUMAB [Suspect]
     Active Substance: CAMRELIZUMAB
     Indication: Hepatic cancer
     Dosage: 200 MG, EVERY 3 WEEKS
     Route: 042
     Dates: start: 20210813, end: 20210914
  4. APATINIB [Suspect]
     Active Substance: APATINIB
     Indication: Hepatic cancer
     Dosage: 250 MG, 1X/DAY, APATINIB MESYLATE
     Route: 048
     Dates: start: 20210815, end: 20210928
  5. LIPIODOL [Suspect]
     Active Substance: ETHIODIZED OIL
     Indication: Hepatic cancer
     Dosage: TACE THERAPY 8 ML, SINGLE
     Dates: start: 20210811, end: 20210811
  6. LIPIODOL [Suspect]
     Active Substance: ETHIODIZED OIL
     Dosage: TACE THERAPY 8 ML, SINGLE
     Dates: start: 20210917, end: 20210917
  7. ENTECAVIR [Concomitant]
     Active Substance: ENTECAVIR
     Indication: Antiviral treatment
     Dosage: 1 CAPSULE, 1X/DAY
     Route: 048
     Dates: start: 20210316, end: 20211121
  8. ACETAMINOPHEN\OXYCODONE HYDROCHLORIDE [Concomitant]
     Active Substance: ACETAMINOPHEN\OXYCODONE HYDROCHLORIDE
     Indication: Analgesic therapy
     Dosage: 1 TABLET, AS NEEDED
     Route: 048
     Dates: start: 20210514

REACTIONS (1)
  - Liver abscess [Recovered/Resolved with Sequelae]

NARRATIVE: CASE EVENT DATE: 20211001
